FAERS Safety Report 4527692-0 (Version None)
Quarter: 2004Q4

REPORT INFORMATION
  Report Type: 
  Country: None (occurrence: None)
  Receive Date: 20041215
  Receipt Date: 20041209
  Transmission Date: 20050328
  Serious: Yes (Life-Threatening, Hospitalization, Other)
  Sender: FDA-Public Use
  Company Number: AU-MERCK-0412AUS00050

PATIENT
  Age: 79 Year
  Sex: Female

DRUGS (6)
  1. VIOXX [Suspect]
     Indication: OSTEOARTHRITIS
     Route: 048
     Dates: start: 20010101, end: 20031101
  2. [COMPOSITION UNSPECIFIED] [Concomitant]
     Indication: CARDIAC DISORDER
     Route: 065
  3. [COMPOSITION UNSPECIFIED] [Concomitant]
     Indication: HIATUS HERNIA
     Route: 065
  4. CALCIUM (UNSPECIFIED) [Concomitant]
     Indication: MINERAL SUPPLEMENTATION
     Route: 065
  5. VITAMINS (UNSPECIFIED) [Concomitant]
     Route: 065
  6. [COMPOSITION UNSPECIFIED] [Concomitant]
     Indication: RELAXATION THERAPY
     Route: 065

REACTIONS (6)
  - CARDIAC DISORDER [None]
  - DEEP VEIN THROMBOSIS [None]
  - FALL [None]
  - HIP FRACTURE [None]
  - LOSS OF CONSCIOUSNESS [None]
  - PELVIC FRACTURE [None]
